FAERS Safety Report 24465850 (Version 1)
Quarter: 2024Q4

REPORT INFORMATION
  Report Type: Report from Study
  Country: US (occurrence: US)
  Receive Date: 20241018
  Receipt Date: 20241018
  Transmission Date: 20250114
  Serious: No
  Sender: ROCHE
  Company Number: US-ROCHE-3520566

PATIENT
  Age: 81 Year
  Sex: Male
  Weight: 73.48 kg

DRUGS (1)
  1. XOLAIR [Suspect]
     Active Substance: OMALIZUMAB
     Indication: Asthma
     Dosage: VIAL FORM, LAST INJECTION DATE: 21/FEB/2024
     Route: 058

REACTIONS (2)
  - Dementia [Not Recovered/Not Resolved]
  - Off label use [Unknown]
